FAERS Safety Report 5405898-6 (Version None)
Quarter: 2007Q3

REPORT INFORMATION
  Report Type: 
  Country: None (occurrence: None)
  Receive Date: 20070802
  Receipt Date: 20070716
  Transmission Date: 20080115
  Serious: Yes (Other)
  Sender: FDA-Public Use
  Company Number: 2007SP014593

PATIENT
  Age: 63 Year
  Sex: Female

DRUGS (3)
  1. CLARITIN [Suspect]
     Indication: SEASONAL ALLERGY
     Dosage: 1 DF;PRN;PO
     Route: 048
     Dates: start: 20050101
  2. SUDAFED S.A. [Suspect]
     Indication: SEASONAL ALLERGY
     Dosage: 1 DF;PRN;PO
     Route: 048
     Dates: end: 20070616
  3. MULTIVITAMIN [Concomitant]

REACTIONS (3)
  - CONJUNCTIVITIS [None]
  - GLAUCOMA [None]
  - NO THERAPEUTIC RESPONSE [None]
